FAERS Safety Report 10548154 (Version 1)
Quarter: 2014Q4

REPORT INFORMATION
  Report Type: Spontaneous
  Country: US (occurrence: None)
  Receive Date: 20141024
  Receipt Date: 20141024
  Transmission Date: 20150529
  Serious: Yes (Disabling, Other)
  Sender: FDA-Public Use
  Company Number: 2014100041

PATIENT
  Age: 44 Year
  Sex: Female
  Weight: 70.76 kg

DRUGS (5)
  1. FLIXOTIDE (FLUTICASONE PROPIONATE) [Concomitant]
     Active Substance: FLUTICASONE PROPIONATE
  2. VENTOLIN [Concomitant]
     Active Substance: ALBUTEROL SULFATE
  3. NASONEX [Concomitant]
     Active Substance: MOMETASONE FUROATE
  4. IMIGRAN (SUMATRIPTAN) [Concomitant]
     Active Substance: SUMATRIPTAN
  5. DYMISTA [Suspect]
     Active Substance: AZELASTINE HYDROCHLORIDE\FLUTICASONE PROPIONATE
     Indication: RHINITIS
     Dosage: 1 DOSAGE FORMS, 2 IN 1 D
     Route: 045
     Dates: start: 20140924, end: 20141001

REACTIONS (4)
  - No therapeutic response [None]
  - Urticaria [None]
  - Asthma [None]
  - Loss of consciousness [None]

NARRATIVE: CASE EVENT DATE: 20141001
